FAERS Safety Report 6776247-6 (Version None)
Quarter: 2010Q2

REPORT INFORMATION
  Report Type: 
  Country: None (occurrence: None)
  Receive Date: 20100615
  Receipt Date: 20100602
  Transmission Date: 20101027
  Serious: No
  Sender: FDA-Public Use
  Company Number: TPA2010A03364

PATIENT
  Age: 50 Year
  Sex: Female

DRUGS (2)
  1. KAPIDEX (DEXLANSOPRAZOLE) [Suspect]
     Indication: DRUG USE FOR UNKNOWN INDICATION
  2. CASODEX [Suspect]

REACTIONS (3)
  - DRUG DISPENSING ERROR [None]
  - HOSPITALISATION [None]
  - WRONG DRUG ADMINISTERED [None]
